FAERS Safety Report 10388085 (Version 1)
Quarter: 2014Q3

REPORT INFORMATION
  Report Type: Report from Study
  Country: US (occurrence: US)
  Receive Date: 20140815
  Receipt Date: 20140815
  Transmission Date: 20150326
  Serious: Yes (Other)
  Sender: FDA-Public Use
  Company Number: PHEH2014US015883

PATIENT
  Sex: Male

DRUGS (3)
  1. MULTIPLE VITAMINS [Concomitant]
     Active Substance: VITAMINS
  2. GILENYA [Suspect]
     Active Substance: FINGOLIMOD HYDROCHLORIDE
     Indication: MULTIPLE SCLEROSIS
     Dosage: 0.5 MG, QD
     Route: 048
     Dates: start: 20111010
  3. TESTOSTERONE. [Concomitant]
     Active Substance: TESTOSTERONE

REACTIONS (3)
  - Convulsion [Recovered/Resolved]
  - Tremor [Not Recovered/Not Resolved]
  - Road traffic accident [Unknown]
